FAERS Safety Report 16800147 (Version 1)
Quarter: 2019Q4

REPORT INFORMATION
  Report Type: Spontaneous
  Country: US (occurrence: US)
  Receive Date: 20190912
  Receipt Date: 20190912
  Transmission Date: 20200122
  Serious: No
  Sender: FDA-Public Use
  Company Number: None

PATIENT
  Age: 72 Year
  Sex: Male
  Weight: 71.7 kg

DRUGS (1)
  1. FLUCYTOSINE. [Suspect]
     Active Substance: FLUCYTOSINE
     Indication: MENINGITIS FUNGAL
     Dates: start: 20190818, end: 20190828

REACTIONS (2)
  - Colitis [None]
  - Therapy cessation [None]

NARRATIVE: CASE EVENT DATE: 20190906
